FAERS Safety Report 8487385-4 (Version None)
Quarter: 2012Q3

REPORT INFORMATION
  Report Type: 
  Country: None (occurrence: None)
  Receive Date: 20120705
  Receipt Date: 20120625
  Transmission Date: 20120928
  Serious: No
  Sender: FDA-Public Use
  Company Number: TH-ELI_LILLY_AND_COMPANY-TH201206008453

PATIENT
  Age: 82 Year
  Sex: Female

DRUGS (3)
  1. ZYPREXA [Suspect]
     Indication: DEMENTIA
     Dosage: 5 MG, UNK
  2. ZYPREXA [Suspect]
     Dosage: 2.5 MG, UNK
  3. WARFARIN SODIUM [Concomitant]

REACTIONS (3)
  - OFF LABEL USE [None]
  - BREAST ENGORGEMENT [None]
  - MENSTRUAL DISORDER [None]
